FAERS Safety Report 9471787 (Version 1)
Quarter: 2013Q3

REPORT INFORMATION
  Report Type: Spontaneous
  Country: IT (occurrence: IT)
  Receive Date: 20130822
  Receipt Date: 20130822
  Transmission Date: 20140515
  Serious: Yes (Hospitalization)
  Sender: FDA-Public Use
  Company Number: IT-GLAXOSMITHKLINE-B0917052A

PATIENT
  Age: 73 Year
  Sex: Male

DRUGS (11)
  1. LAMICTAL [Suspect]
     Indication: EPILEPSY
     Dosage: 100MG PER DAY
     Route: 048
  2. LANSOPRAZOLE [Concomitant]
     Dosage: 30MG PER DAY
     Route: 048
  3. ALLOPURINOL [Concomitant]
     Dosage: 300MG PER DAY
     Route: 048
  4. SIMVASTATINA [Concomitant]
     Dosage: 20MG PER DAY
     Route: 048
  5. DILATREND [Concomitant]
     Dosage: 12.5MG PER DAY
     Route: 048
  6. DELTACORTENE [Concomitant]
     Dosage: 5MG PER DAY
     Route: 048
  7. TRINIPLAS [Concomitant]
     Dosage: 5MG PER DAY
     Route: 062
  8. ZANEDIP [Concomitant]
     Dosage: 10MG PER DAY
     Route: 048
  9. APROVEL [Concomitant]
     Dosage: 150MG PER DAY
     Route: 048
  10. CARDIOASPIRIN [Concomitant]
     Dosage: 100MG PER DAY
     Route: 048
  11. FERROGRAD C [Concomitant]
     Dosage: 105MG PER DAY
     Route: 048

REACTIONS (2)
  - Aphthous stomatitis [Unknown]
  - Rash papular [Unknown]
